FAERS Safety Report 23268064 (Version 1)
Quarter: 2023Q4

REPORT INFORMATION
  Report Type: Spontaneous
  Country: CN (occurrence: CN)
  Receive Date: 20231206
  Receipt Date: 20231206
  Transmission Date: 20240110
  Serious: Yes (Hospitalization)
  Sender: FDA-Public Use
  Company Number: CN-JNJFOC-20231175943

PATIENT
  Age: 60 Year
  Sex: Male
  Weight: 98 kg

DRUGS (4)
  1. DARZALEX [Suspect]
     Active Substance: DARATUMUMAB
     Indication: Plasma cell myeloma
     Dosage: D1, D8, D15, D22,ON 10-JUL, 0.9% SODIUM CHLORIDE INJECTION 50ML + DARATUMUMAB 0.8G WAS INTRAVENOUSLY
     Route: 041
  2. DARZALEX [Suspect]
     Active Substance: DARATUMUMAB
     Route: 041
     Dates: start: 20230710, end: 20230710
  3. VELCADE [Suspect]
     Active Substance: BORTEZOMIB
     Indication: Plasma cell myeloma
     Dosage: D1, D4, D8,D11
     Route: 065
     Dates: start: 20230710, end: 20230710
  4. DEXAMETHASONE [Suspect]
     Active Substance: DEXAMETHASONE
     Indication: Plasma cell myeloma
     Dosage: D1-2, D4-5, D8-9, D11-12
     Route: 065
     Dates: start: 20230710, end: 20230710

REACTIONS (5)
  - Oxygen saturation decreased [Recovering/Resolving]
  - Rash [Recovering/Resolving]
  - Chest discomfort [Recovering/Resolving]
  - Infusion related reaction [Recovering/Resolving]
  - Off label use [Unknown]

NARRATIVE: CASE EVENT DATE: 20230710
